FAERS Safety Report 8964926 (Version 2)
Quarter: 2013Q1

REPORT INFORMATION
  Report Type: Spontaneous
  Country: US (occurrence: US)
  Receive Date: 20121213
  Receipt Date: 20130117
  Transmission Date: 20140127
  Serious: Yes (Hospitalization)
  Sender: FDA-Public Use
  Company Number: US-GILEAD-2012-0066081

PATIENT
  Sex: Male

DRUGS (2)
  1. LETAIRIS [Suspect]
     Indication: PULMONARY ARTERIAL HYPERTENSION
     Dosage: 10 MG, PRN
     Route: 048
     Dates: start: 20090127
  2. REVATIO [Concomitant]

REACTIONS (2)
  - Myocardial infarction [Unknown]
  - Pulmonary hypertension [Unknown]
